FAERS Safety Report 15595034 (Version 2)
Quarter: 2018Q4

REPORT INFORMATION
  Report Type: Spontaneous
  Country: NL (occurrence: NL)
  Receive Date: 20181106
  Receipt Date: 20181112
  Transmission Date: 20190205
  Serious: Yes (Hospitalization)
  Sender: FDA-Public Use
  Company Number: NL-AMGEN-NLDSP2018156049

PATIENT
  Age: 12 Year
  Sex: Female

DRUGS (4)
  1. EMTHEXATE PF [Concomitant]
     Dosage: 15 MG, WEEKLY
     Route: 050
     Dates: start: 20071114
  2. FOLIUMZUUR [Concomitant]
     Active Substance: FOLIC ACID
     Dosage: 5 MG, WEEKLY
     Route: 048
  3. ENBREL [Suspect]
     Active Substance: ETANERCEPT
     Indication: JUVENILE IDIOPATHIC ARTHRITIS
     Dosage: 25 MG, WEEKLY, NO MEDICATION 30NOV2007 AND 07DEC2007
     Route: 050
     Dates: start: 20071116, end: 20080214
  4. OMEPRAZOL PCH [Concomitant]
     Dosage: 20 MG, 1X/DAY
     Route: 050

REACTIONS (16)
  - Swelling face [Recovering/Resolving]
  - Back pain [Recovering/Resolving]
  - Abdominal pain upper [Recovering/Resolving]
  - Arthralgia [Recovering/Resolving]
  - General physical health deterioration [Recovering/Resolving]
  - Vision blurred [Recovering/Resolving]
  - Paraesthesia [Recovering/Resolving]
  - Oedema peripheral [Recovering/Resolving]
  - Lung disorder [Recovering/Resolving]
  - Balance disorder [Recovering/Resolving]
  - Pharyngeal mass [Recovering/Resolving]
  - Dyspnoea [Recovering/Resolving]
  - Headache [Recovering/Resolving]
  - Cough [Recovering/Resolving]
  - Dysphagia [Recovering/Resolving]
  - Tinnitus [Recovering/Resolving]

NARRATIVE: CASE EVENT DATE: 200711
